FAERS Safety Report 18001537 (Version 1)
Quarter: 2020Q3

REPORT INFORMATION
  Report Type: Spontaneous
  Country: US (occurrence: US)
  Receive Date: 20200709
  Receipt Date: 20200709
  Transmission Date: 20201103
  Serious: No
  Sender: FDA-Public Use
  Company Number: US-VERTEX PHARMACEUTICALS-2020-012608

PATIENT
  Age: 24 Year
  Sex: Male
  Weight: 55 kg

DRUGS (1)
  1. TRIKAFTA [Suspect]
     Active Substance: ELEXACAFTOR\IVACAFTOR\TEZACAFTOR
     Indication: CYSTIC FIBROSIS
     Dosage: (100 MG/ 50 MG /75 MG, 150MG)?TRADITIONAL DOSING
     Route: 048
     Dates: start: 20200122, end: 20200520

REACTIONS (3)
  - Lip swelling [Recovered/Resolved]
  - Pharyngeal swelling [Unknown]
  - Swollen tongue [Recovered/Resolved]

NARRATIVE: CASE EVENT DATE: 202005
